FAERS Safety Report 5296454-1 (Version None)
Quarter: 2007Q2

REPORT INFORMATION
  Report Type: 
  Country: None (occurrence: None)
  Receive Date: 20070413
  Receipt Date: 20070403
  Transmission Date: 20071010
  Serious: Yes (Other)
  Sender: FDA-Public Use
  Company Number: US-SANOFI-SYNTHELABO-A03200601607

PATIENT
  Sex: Female

DRUGS (8)
  1. AMBIEN [Suspect]
     Indication: DRUG USE FOR UNKNOWN INDICATION
     Dosage: 5 TO 10 MG AT NIGHT
     Route: 048
  2. HYDROMORPHONE HCL [Concomitant]
     Dosage: UNK
     Route: 048
  3. AUGMENTIN '125' [Concomitant]
     Dosage: 875-125 MG
     Route: 048
  4. ALPRAZOLAM [Concomitant]
     Dosage: UNK
     Route: 048
  5. CLONAZEPAM [Concomitant]
     Dosage: UNK
     Route: 048
  6. CLIMARA [Concomitant]
     Route: 061
  7. LORAZEPAM [Concomitant]
     Dosage: UNK
     Route: 048
  8. HYDROCHLOROTHIAZIDE [Concomitant]
     Dosage: UNK
     Route: 048

REACTIONS (4)
  - AMNESIA [None]
  - DISORIENTATION [None]
  - EATING DISORDER [None]
  - SLEEP WALKING [None]
